FAERS Safety Report 4826470-2 (Version None)
Quarter: 2005Q4

REPORT INFORMATION
  Report Type: 
  Country: None (occurrence: None)
  Receive Date: 20051014
  Receipt Date: 20050909
  Transmission Date: 20060501
  Serious: Yes (Other)
  Sender: FDA-Public Use
  Company Number: 2005117305

PATIENT
  Age: 84 Year
  Sex: Female

DRUGS (5)
  1. MACUGEN [Suspect]
     Indication: MACULAR DEGENERATION
     Dosage: 0.3 MG (0.3 MG,1 IN 6 WK),INTRAVENOUS
     Route: 042
     Dates: start: 20050419, end: 20050712
  2. GATIFLOXACIN [Concomitant]
  3. ALL OTHER THERAPEUTIC PRODUCTS (ALL OTHER THERAPEUTIC PRODUCTS) [Concomitant]
  4. SYNTHROID [Concomitant]
  5. ASPIRIN [Concomitant]

REACTIONS (1)
  - ENDOPHTHALMITIS [None]
